FAERS Safety Report 4388684-8 (Version None)
Quarter: 2004Q2

REPORT INFORMATION
  Report Type: 
  Country: None (occurrence: None)
  Receive Date: 20040624
  Receipt Date: 20040615
  Transmission Date: 20050107
  Serious: Yes (Other)
  Sender: FDA-Public Use
  Company Number: 2004040131

PATIENT
  Age: 36 Year
  Sex: Female
  Weight: 59.8748 kg

DRUGS (2)
  1. ZOLOFT [Suspect]
     Indication: AFFECTIVE DISORDER
     Dosage: 50 MG (50 MG, 1 IN 1 D), ORAL
     Route: 048
     Dates: start: 20020101, end: 20040201
  2. ZOLOFT [Suspect]
     Indication: PANIC REACTION
     Dosage: 50 MG (50 MG, 1 IN 1 D), ORAL
     Route: 048
     Dates: start: 20020101, end: 20040201

REACTIONS (6)
  - AFFECTIVE DISORDER [None]
  - BLOOD CHOLESTEROL INCREASED [None]
  - FALL [None]
  - JOINT INJURY [None]
  - LOW DENSITY LIPOPROTEIN INCREASED [None]
  - PANIC DISORDER [None]
